FAERS Safety Report 9813121 (Version 1)
Quarter: 2014Q1

REPORT INFORMATION
  Report Type: Spontaneous
  Country: US (occurrence: None)
  Receive Date: 20140110
  Receipt Date: 20140110
  Transmission Date: 20141002
  Serious: Yes (Life-Threatening, Disabling)
  Sender: FDA-Public Use
  Company Number: None

PATIENT
  Age: 71 Year
  Sex: Male
  Weight: 81.65 kg

DRUGS (2)
  1. DEPAKOTE [Suspect]
     Indication: DEMENTIA
     Route: 048
     Dates: end: 20131228
  2. DEPAKOTE [Suspect]
     Indication: AGGRESSION
     Route: 048
     Dates: end: 20131228

REACTIONS (4)
  - Wheelchair user [None]
  - Incoherent [None]
  - Dysarthria [None]
  - Lethargy [None]
